FAERS Safety Report 22340865 (Version 2)
Quarter: 2023Q2

REPORT INFORMATION
  Report Type: Spontaneous
  Country: US (occurrence: US)
  Receive Date: 20230518
  Receipt Date: 20230622
  Transmission Date: 20230721
  Serious: Yes (Life-Threatening, Other)
  Sender: FDA-Public Use
  Company Number: US-PFIZER INC-PV202300074646

PATIENT
  Age: 66 Year
  Sex: Female
  Weight: 67.574 kg

DRUGS (4)
  1. SOLU-CORTEF [Suspect]
     Active Substance: HYDROCORTISONE SODIUM SUCCINATE
     Indication: Primary adrenal insufficiency
     Dosage: 47 MG VIA INFUSION PUMP
     Dates: start: 201108
  2. SOLU-CORTEF [Suspect]
     Active Substance: HYDROCORTISONE SODIUM SUCCINATE
     Dosage: PLAIN VIALS
     Dates: start: 20140512
  3. SOLU-CORTEF [Suspect]
     Active Substance: HYDROCORTISONE SODIUM SUCCINATE
     Dosage: 47 IU VIA PUMP (SWITCHED TO ACT-O-VIAL DUE TO SHORTAGE)
     Route: 058
     Dates: start: 20230512
  4. BACTERIOSTATIC SODIUM CHLORIDE [Concomitant]
     Active Substance: SODIUM CHLORIDE
     Dosage: UNK
     Dates: start: 201412

REACTIONS (7)
  - Adrenocortical insufficiency acute [Unknown]
  - Skin infection [Not Recovered/Not Resolved]
  - Sepsis [Unknown]
  - Stress [Unknown]
  - Feeling abnormal [Unknown]
  - Cortisol abnormal [Unknown]
  - Nasopharyngitis [Unknown]

NARRATIVE: CASE EVENT DATE: 20230101
